FAERS Safety Report 10313050 (Version 1)
Quarter: 2014Q3

REPORT INFORMATION
  Report Type: Spontaneous
  Country: US (occurrence: None)
  Receive Date: 20140717
  Receipt Date: 20140717
  Transmission Date: 20150326
  Serious: Yes (Other)
  Sender: FDA-Public Use
  Company Number: None

PATIENT
  Age: 70 Year
  Sex: Female
  Weight: 77.11 kg

DRUGS (1)
  1. LATISSE [Suspect]
     Active Substance: BIMATOPROST
     Indication: GROWTH OF EYELASHES
     Dosage: ONCE AT NIGHT AT BEDTIME LASHES
     Dates: start: 20020212, end: 20140409

REACTIONS (1)
  - Erythema of eyelid [None]

NARRATIVE: CASE EVENT DATE: 20140416
